FAERS Safety Report 4999933-7 (Version None)
Quarter: 2006Q2

REPORT INFORMATION
  Report Type: 
  Country: None (occurrence: None)
  Receive Date: 20060509
  Receipt Date: 20060419
  Transmission Date: 20061013
  Serious: Yes (Hospitalization, Other)
  Sender: FDA-Public Use
  Company Number: FR200604003094

PATIENT
  Age: 66 Year
  Sex: Female

DRUGS (9)
  1. FORSTEO (TERIPARTIDE)PEN, DISPOSABLE) [Suspect]
     Indication: OSTEOPOROSIS
     Dosage: 20 UG DAILY (1/D), SUBCUTANEOUS
     Route: 058
     Dates: start: 20051021
  2. FORTEO PEN (FORTEO PEN) [Concomitant]
  3. DILTIAZEM HYDROCHLORIDE [Concomitant]
  4. FONZYLANE (BUFLOMEDIL HYDROCHLORIDE) [Concomitant]
  5. MOLSIDOMINE (MOLSIDOMINE) [Concomitant]
  6. KARDEGIC (ACETYLSALICYLATE LYSINE) [Concomitant]
  7. ATORVASTATIN CALCIUM [Concomitant]
  8. BROMAZEPAM (BROMAZEPAM) [Concomitant]
  9. CLONAZEPAM [Concomitant]

REACTIONS (4)
  - ABDOMINAL PAIN [None]
  - COLONIC STENOSIS [None]
  - OEDEMA PERIPHERAL [None]
  - PAIN IN EXTREMITY [None]
